FAERS Safety Report 16424445 (Version 2)
Quarter: 2019Q2

REPORT INFORMATION
  Report Type: Spontaneous
  Country: US (occurrence: US)
  Receive Date: 20190613
  Receipt Date: 20190627
  Transmission Date: 20190711
  Serious: Yes (Other)
  Sender: FDA-Public Use
  Company Number: US-DRREDDYS-USA/USA/19/0111043

PATIENT
  Age: 69 Year
  Sex: Male

DRUGS (3)
  1. DECITABINE. [Suspect]
     Active Substance: DECITABINE
     Indication: CHRONIC MYELOMONOCYTIC LEUKAEMIA
     Dosage: DECITABINE 20 MG/M2/DAY ON DAYS 1-5 OF A 28-DAY CYCLE
     Route: 065
  2. TOCILIZUMAB. [Concomitant]
     Active Substance: TOCILIZUMAB
     Indication: CHRONIC MYELOMONOCYTIC LEUKAEMIA
  3. AZACITIDINE. [Suspect]
     Active Substance: AZACITIDINE
     Indication: CHRONIC MYELOMONOCYTIC LEUKAEMIA
     Dosage: AZACITIDINE INJECTIONS OF 75 MG/M2/DAY ON DAYS 1- 5 OF A 28-DAY CYCLE
     Route: 065

REACTIONS (2)
  - Condition aggravated [Not Recovered/Not Resolved]
  - Injection site reaction [Unknown]
